FAERS Safety Report 20175286 (Version 3)
Quarter: 2022Q2

REPORT INFORMATION
  Report Type: Spontaneous
  Country: US (occurrence: US)
  Receive Date: 20211213
  Receipt Date: 20220504
  Transmission Date: 20220721
  Serious: Yes (Other)
  Sender: FDA-Public Use
  Company Number: US-BIOCODEX2-2021001503

PATIENT

DRUGS (9)
  1. DIACOMIT [Suspect]
     Active Substance: STIRIPENTOL
     Indication: Severe myoclonic epilepsy of infancy
     Dosage: 750 MG, QD (375MG TWICE DAILY)
     Route: 065
     Dates: start: 20210817
  2. DIACOMIT [Suspect]
     Active Substance: STIRIPENTOL
     Dosage: 700 MG, QD (375MG TWICE DAILY)
     Route: 065
     Dates: end: 202204
  3. DIACOMIT [Suspect]
     Active Substance: STIRIPENTOL
     Dosage: 900 MG, QD (250MG,450 MG 2 TIMES DAILY AND GIVE 18 ML IN THE MORNING AND 18 ML AT NIGHT)
     Route: 065
  4. CLOBAZAM [Concomitant]
     Active Substance: CLOBAZAM
     Indication: Severe myoclonic epilepsy of infancy
     Dosage: UNK
     Route: 065
  5. ONFI [Concomitant]
     Active Substance: CLOBAZAM
     Indication: Severe myoclonic epilepsy of infancy
     Route: 065
  6. EPIDIOLEX [Concomitant]
     Active Substance: CANNABIDIOL
     Indication: Product used for unknown indication
     Dosage: UNK
     Route: 065
  7. EPIDIOLEX [Concomitant]
     Active Substance: CANNABIDIOL
     Route: 065
  8. TOPIRAMATE [Concomitant]
     Active Substance: TOPIRAMATE
     Indication: Product used for unknown indication
     Route: 065
  9. FINTEPLA [Concomitant]
     Active Substance: FENFLURAMINE
     Indication: Product used for unknown indication
     Route: 065

REACTIONS (2)
  - Seizure [Recovered/Resolved]
  - Drug ineffective [Unknown]
